FAERS Safety Report 15004972 (Version 1)
Quarter: 2018Q2

REPORT INFORMATION
  Report Type: Spontaneous
  Country: US (occurrence: US)
  Receive Date: 20180613
  Receipt Date: 20180613
  Transmission Date: 20180711
  Serious: No
  Sender: FDA-Public Use
  Company Number: US-COVIS PHARMA B.V.-2018COV00170

PATIENT
  Age: 6 Month
  Sex: Male

DRUGS (2)
  1. NEXIUM [Suspect]
     Active Substance: ESOMEPRAZOLE MAGNESIUM
     Dosage: UNK
     Dates: start: 201802
  2. OMEPRAZOLE MAGNESIUM. [Suspect]
     Active Substance: OMEPRAZOLE MAGNESIUM

REACTIONS (8)
  - Screaming [Unknown]
  - Abnormal behaviour [Unknown]
  - Anxiety [Unknown]
  - Faeces hard [Not Recovered/Not Resolved]
  - Tremor [Unknown]
  - Flatulence [Unknown]
  - Faeces discoloured [Not Recovered/Not Resolved]
  - Constipation [Recovered/Resolved]
